FAERS Safety Report 24927292 (Version 1)
Quarter: 2025Q1

REPORT INFORMATION
  Report Type: Report from Study
  Country: CO (occurrence: CO)
  Receive Date: 20250205
  Receipt Date: 20250205
  Transmission Date: 20250408
  Serious: Yes (Hospitalization)
  Sender: JOHNSON AND JOHNSON
  Company Number: CO-JNJFOC-20250176421

PATIENT
  Age: 26 Year
  Sex: Male
  Weight: 130 kg

DRUGS (5)
  1. INVEGA SUSTENNA [Suspect]
     Active Substance: PALIPERIDONE PALMITATE
     Indication: Schizophrenia
     Dosage: THE LAST APPLICATION DATE WAS ON 24-DEC-2024
     Route: 030
     Dates: start: 20240806
  2. INVEGA SUSTENNA [Suspect]
     Active Substance: PALIPERIDONE PALMITATE
  3. INVEGA SUSTENNA [Suspect]
     Active Substance: PALIPERIDONE PALMITATE
  4. CLOZAPINE [Concomitant]
     Active Substance: CLOZAPINE
     Indication: Product used for unknown indication
  5. RISPERIDONE [Concomitant]
     Active Substance: RISPERIDONE
     Indication: Product used for unknown indication

REACTIONS (4)
  - Psychotic disorder [Recovering/Resolving]
  - Pneumonia [Recovering/Resolving]
  - Respiratory arrest [Recovering/Resolving]
  - Biliary colic [Not Recovered/Not Resolved]

NARRATIVE: CASE EVENT DATE: 20241115
